FAERS Safety Report 22966909 (Version 2)
Quarter: 2024Q2

REPORT INFORMATION
  Report Type: Spontaneous
  Country: CA (occurrence: CA)
  Receive Date: 20230921
  Receipt Date: 20240408
  Transmission Date: 20240716
  Serious: Yes (Other)
  Sender: FDA-Public Use
  Company Number: CA-002147023-NVSC2022CA167180

PATIENT
  Age: 56 Year
  Sex: Female

DRUGS (5)
  1. DUREZOL [Suspect]
     Active Substance: DIFLUPREDNATE
     Indication: Product used for unknown indication
     Dosage: 1 UNK, OTHER (ROUTE: GGT)
     Route: 065
  2. NEVANAC [Suspect]
     Active Substance: NEPAFENAC
     Indication: Product used for unknown indication
     Dosage: 1 UNK, QD (ROUTE: GGT)
     Route: 047
  3. PERINDOPRIL ERBUMINE [Suspect]
     Active Substance: PERINDOPRIL ERBUMINE
     Indication: Product used for unknown indication
     Dosage: 4 MG, QD
     Route: 048
  4. ROSUVASTATIN CALCIUM [Suspect]
     Active Substance: ROSUVASTATIN CALCIUM
     Indication: Product used for unknown indication
     Dosage: 40 MG, QD
     Route: 048
  5. ADALIMUMAB [Concomitant]
     Active Substance: ADALIMUMAB\ISOPROPYL ALCOHOL
     Indication: Product used for unknown indication
     Dosage: UNK
     Route: 058

REACTIONS (3)
  - Uveitis [Unknown]
  - Sacroiliitis [Unknown]
  - Musculoskeletal stiffness [Not Recovered/Not Resolved]
